FAERS Safety Report 20175790 (Version 2)
Quarter: 2022Q1

REPORT INFORMATION
  Report Type: Spontaneous
  Country: MX (occurrence: None)
  Receive Date: 20211213
  Receipt Date: 20220106
  Transmission Date: 20220423
  Serious: Yes (Life-Threatening, Hospitalization, Other)
  Sender: FDA-Public Use
  Company Number: 2021A867736

PATIENT
  Age: 83 Year
  Sex: Male
  Weight: 39 kg

DRUGS (3)
  1. ESOMEPRAZOLE [Suspect]
     Active Substance: ESOMEPRAZOLE
     Indication: Prophylaxis
     Route: 048
     Dates: start: 20211124
  2. AZACITIDINE [Suspect]
     Active Substance: AZACITIDINE
     Indication: Myelodysplastic syndrome
     Dosage: 94.0MG UNKNOWN
     Route: 065
     Dates: start: 20211101
  3. FILGRASTIM [Concomitant]
     Active Substance: FILGRASTIM
     Dosage: 12 HOURS X 5 DAYS
     Route: 058

REACTIONS (11)
  - Febrile neutropenia [Recovered/Resolved with Sequelae]
  - Alopecia [Recovered/Resolved with Sequelae]
  - Dehydration [Recovered/Resolved]
  - Candida infection [Recovered/Resolved with Sequelae]
  - Hypocalcaemia [Recovered/Resolved with Sequelae]
  - Anaemia [Recovered/Resolved]
  - Oedema [Recovered/Resolved]
  - Thrombocytopenia [Unknown]
  - White blood cell count decreased [Unknown]
  - Blood potassium decreased [Unknown]
  - Hyponatraemia [Recovered/Resolved]

NARRATIVE: CASE EVENT DATE: 20211124
